FAERS Safety Report 7234431-1 (Version None)
Quarter: 2011Q1

REPORT INFORMATION
  Report Type: 
  Country: None (occurrence: None)
  Receive Date: 20110119
  Receipt Date: 20110113
  Transmission Date: 20110831
  Serious: Yes (Hospitalization)
  Sender: FDA-Public Use
  Company Number: US-B.I. PHARMACEUTICALS,INC./RIDGEFIELD-2010-BP-14990BP

PATIENT
  Age: 72 Year
  Sex: Male
  Weight: 65.77 kg

DRUGS (5)
  1. FERROUS SULFATE [Concomitant]
     Dosage: 324 MG
     Dates: start: 20101217
  2. PRADAXA [Suspect]
     Dosage: 150 MG
     Route: 048
     Dates: start: 20101207
  3. PRADAXA [Suspect]
     Indication: ATRIAL FIBRILLATION
     Dosage: 300 MG
     Route: 048
     Dates: start: 20101201
  4. PRILOSEC [Concomitant]
     Dosage: 20 MG
  5. ASPIRIN [Concomitant]
     Dosage: 325 MG

REACTIONS (1)
  - RECTAL HAEMORRHAGE [None]
